FAERS Safety Report 23651455 (Version 1)
Quarter: 2024Q1

REPORT INFORMATION
  Report Type: Spontaneous
  Country: IR (occurrence: IR)
  Receive Date: 20240320
  Receipt Date: 20240320
  Transmission Date: 20240410
  Serious: Yes (Other)
  Sender: FDA-Public Use
  Company Number: IR-SOLA PHARMACEUTICALS-20240300003

PATIENT

DRUGS (1)
  1. TERIFLUNOMIDE [Suspect]
     Active Substance: TERIFLUNOMIDE
     Indication: Multiple sclerosis
     Dosage: 14 MILLIGRAM, QD (14 MG PO QDAY)
     Route: 048

REACTIONS (2)
  - Crohn^s disease [Recovered/Resolved]
  - Psoriasis [Recovered/Resolved]
